FAERS Safety Report 6664359-7 (Version None)
Quarter: 2010Q2

REPORT INFORMATION
  Report Type: 
  Country: None (occurrence: None)
  Receive Date: 20100401
  Receipt Date: 20100325
  Transmission Date: 20101027
  Serious: Yes (Other)
  Sender: FDA-Public Use
  Company Number: PHHY2010DE03350

PATIENT
  Sex: Female
  Weight: 45 kg

DRUGS (1)
  1. EXTAVIA [Suspect]
     Indication: MULTIPLE SCLEROSIS
     Dosage: 0.8 ML/DAY
     Route: 058
     Dates: start: 20090707, end: 20091103

REACTIONS (1)
  - INJECTION SITE NECROSIS [None]
